FAERS Safety Report 22321731 (Version 3)
Quarter: 2023Q2

REPORT INFORMATION
  Report Type: Spontaneous
  Country: US (occurrence: US)
  Receive Date: 20230516
  Receipt Date: 20230627
  Transmission Date: 20230721
  Serious: No
  Sender: FDA-Public Use
  Company Number: US-JNJFOC-20230532658

PATIENT
  Age: 62 Year
  Sex: Male

DRUGS (11)
  1. TREMFYA [Suspect]
     Active Substance: GUSELKUMAB
     Indication: Psoriatic arthropathy
     Route: 065
  2. ALBUTEROL [Concomitant]
     Active Substance: ALBUTEROL
  3. AMLODIPINE [Concomitant]
     Active Substance: AMLODIPINE BESYLATE
  4. CARVEDILOL [Concomitant]
     Active Substance: CARVEDILOL
  5. CELECOXIB [Concomitant]
     Active Substance: CELECOXIB
  6. DULOXETINE [Concomitant]
     Active Substance: DULOXETINE
  7. FENOFIBRATE [Concomitant]
     Active Substance: FENOFIBRATE
  8. TRELEGY ELLIPTA [Concomitant]
     Active Substance: FLUTICASONE FUROATE\UMECLIDINIUM BROMIDE\VILANTEROL TRIFENATATE
  9. FOLIC ACID [Concomitant]
     Active Substance: FOLIC ACID
  10. FUROSEMIDE [Concomitant]
     Active Substance: FUROSEMIDE
  11. MELOXICAM [Concomitant]
     Active Substance: MELOXICAM

REACTIONS (5)
  - Device issue [Unknown]
  - Accidental exposure to product [Unknown]
  - Product dose omission issue [Unknown]
  - Inappropriate schedule of product administration [Unknown]
  - Needle issue [Unknown]

NARRATIVE: CASE EVENT DATE: 20230511
